FAERS Safety Report 14799277 (Version 3)
Quarter: 2020Q2

REPORT INFORMATION
  Report Type: Spontaneous
  Country: FR (occurrence: FR)
  Receive Date: 20180424
  Receipt Date: 20200418
  Transmission Date: 20200713
  Serious: Yes (Other)
  Sender: FDA-Public Use
  Company Number: FR-AUROBINDO-AUR-APL-2018-021842

PATIENT
  Sex: Male

DRUGS (18)
  1. ACTISKENAN [Suspect]
     Active Substance: MORPHINE SULFATE
     Indication: BACK PAIN
     Dosage: 18 DOSAGE FORM
     Route: 065
  2. SKENAN [Suspect]
     Active Substance: MORPHINE SULFATE
     Indication: BACK PAIN
     Dosage: 120 MILLIGRAM, TWO TIMES A DAY IN THE MORNING AND IN THE EVENING
     Route: 065
  3. SKENAN [Suspect]
     Active Substance: MORPHINE SULFATE
     Dosage: 50 MILLIGRAM, ONCE A DAY, AT NIGHT
     Route: 065
  4. LYSANXIA [Suspect]
     Active Substance: PRAZEPAM
     Indication: MUSCLE RELAXANT THERAPY
     Dosage: UNK, 3 TO 6 DOSAGE FORMS
     Route: 065
  5. TRAMADOL. [Suspect]
     Active Substance: TRAMADOL
     Dosage: 300 MILLIGRAM, IN THE MORNING, IN MIDDAY, IN THE EVENING
     Route: 065
  6. CODOLIPRANE [Suspect]
     Active Substance: ACETAMINOPHEN\CODEINE PHOSPHATE
     Indication: PAIN
     Dosage: UNK, UP TO 4 TO 6 OCCASIONALLY
     Route: 065
  7. SKENAN [Suspect]
     Active Substance: MORPHINE SULFATE
     Dosage: 60 MILLIGRAM, TWO TIMES A DAY,IN THE MORNING AND IN THE EVENING
     Route: 065
  8. ACTISKENAN [Suspect]
     Active Substance: MORPHINE SULFATE
     Indication: PRODUCT USED FOR UNKNOWN INDICATION
     Dosage: 18 DOSAGE FORM, ONCE A DAY
     Route: 065
  9. ACTISKENAN [Suspect]
     Active Substance: MORPHINE SULFATE
     Indication: BACK PAIN
     Dosage: 60 MILLIGRAM, ONCE A DAY,ON THE DAY
     Route: 065
  10. SKENAN [Suspect]
     Active Substance: MORPHINE SULFATE
     Dosage: 120 MILLIGRAM, 2 DAY, IN THE MORNING AND IN THE EVENING
     Route: 065
  11. SKENAN [Suspect]
     Active Substance: MORPHINE SULFATE
     Indication: BACK PAIN
     Dosage: UNK, IN THE MORNING
     Route: 065
  12. SKENAN [Suspect]
     Active Substance: MORPHINE SULFATE
     Dosage: UNK, 2 DAY IN THE MORNING
     Route: 065
  13. SKENAN [Suspect]
     Active Substance: MORPHINE SULFATE
     Dosage: 60 MILLIGRAM
     Route: 065
  14. PRAZEPAM [Suspect]
     Active Substance: PRAZEPAM
     Indication: MUSCLE RELAXANT THERAPY
     Dosage: 30 MILLIGRAM, ONCE A DAY (10 MG IN THE MORNING, 10 MG IN MIDDAY, 10 MG IN THE EVENING)
     Route: 065
  15. STILNOX [Concomitant]
     Active Substance: ZOLPIDEM TARTRATE
     Indication: PAIN
     Dosage: UNK, ONE OR 2 DOSAGE FORMS IN CASE OF MAJOR PAIN CRISIS
     Route: 065
  16. TRAMADOL. [Suspect]
     Active Substance: TRAMADOL
     Indication: BACK PAIN
     Dosage: 300 MILLIGRAM, ONCE A DAY IN THE MORNING, IN MIDDAY, IN THE EVENING
     Route: 065
  17. ACTISKENAN [Suspect]
     Active Substance: MORPHINE SULFATE
     Dosage: 60 MILLIGRAM ON THE DAY
  18. SKENAN [Suspect]
     Active Substance: MORPHINE SULFATE
     Dosage: 60 MILLIGRAM, TWO TIMES A DAY, IN THE MORNING AND IN THE EVENING
     Route: 045

REACTIONS (8)
  - Fatigue [Unknown]
  - Drug diversion [Unknown]
  - Intentional product use issue [Unknown]
  - Drug dependence [Unknown]
  - Feeling abnormal [Unknown]
  - Drug abuse [Unknown]
  - Drug tolerance [Unknown]
  - Withdrawal syndrome [Unknown]
